FAERS Safety Report 5402935-X (Version None)
Quarter: 2007Q3

REPORT INFORMATION
  Report Type: 
  Country: None (occurrence: None)
  Receive Date: 20070801
  Receipt Date: 20070720
  Transmission Date: 20080115
  Serious: Yes (Hospitalization)
  Sender: FDA-Public Use
  Company Number: FR-ELI_LILLY_AND_COMPANY-FR200706005624

PATIENT
  Age: 63 Year
  Sex: Female
  Weight: 50 kg

DRUGS (3)
  1. EVISTA [Suspect]
     Indication: RESORPTION BONE INCREASED
     Dosage: 60 MG, DAILY (1/D)
     Route: 048
     Dates: start: 20030101
  2. PAROXETINE HCL [Concomitant]
     Indication: DEPRESSION
     Dosage: 1 D/F, DAILY (1/D)
     Route: 048
  3. OROCAL D(3) [Concomitant]
     Indication: RESORPTION BONE INCREASED
     Dosage: 2 D/F, DAILY (1/D)
     Route: 048

REACTIONS (3)
  - ARTHRALGIA [None]
  - MUSCLE SPASMS [None]
  - OSTEOARTHRITIS [None]
